FAERS Safety Report 15048056 (Version 2)
Quarter: 2018Q3

REPORT INFORMATION
  Report Type: Report from Study
  Country: None (occurrence: TN)
  Receive Date: 20180622
  Receipt Date: 20180711
  Transmission Date: 20181010
  Serious: Yes (Hospitalization, Other)
  Sender: FDA-Public Use
  Company Number: TN-ABBVIE-18K-160-2394638-00

PATIENT
  Age: 55 Year
  Sex: Female

DRUGS (2)
  1. GASTRAN [Concomitant]
     Indication: PRODUCT USED FOR UNKNOWN INDICATION
     Dates: start: 2011
  2. HUMIRA [Suspect]
     Active Substance: ADALIMUMAB
     Indication: CROHN^S DISEASE
     Route: 058
     Dates: start: 2013, end: 201804

REACTIONS (5)
  - Pyrexia [Unknown]
  - Proctalgia [Unknown]
  - Eructation [Recovered/Resolved]
  - Intestinal obstruction [Recovered/Resolved]
  - Anal fistula infection [Not Recovered/Not Resolved]

NARRATIVE: CASE EVENT DATE: 201703
